FAERS Safety Report 7545250-0 (Version None)
Quarter: 2011Q2

REPORT INFORMATION
  Report Type: 
  Country: None (occurrence: None)
  Receive Date: 20110524
  Receipt Date: 20110211
  Transmission Date: 20111010
  Serious: No
  Sender: FDA-Public Use
  Company Number: 027346

PATIENT
  Sex: Female
  Weight: 80.7 kg

DRUGS (7)
  1. VITAMIN D [Concomitant]
  2. PRILOSEC [Concomitant]
  3. CIPRO [Concomitant]
  4. PREDNISONE [Concomitant]
  5. LORTAB [Concomitant]
  6. CIMZIA [Suspect]
     Indication: CROHN'S DISEASE
     Dosage: (400 MG 1X/4 WEEKS SUBCUTANEOUS)
     Route: 058
     Dates: start: 20090601
  7. IMURAN [Concomitant]

REACTIONS (1)
  - CROHN'S DISEASE [None]
